FAERS Safety Report 17696542 (Version 1)
Quarter: 2020Q2

REPORT INFORMATION
  Report Type: Spontaneous
  Country: US (occurrence: US)
  Receive Date: 20200423
  Receipt Date: 20200423
  Transmission Date: 20200714
  Serious: Yes (Hospitalization, Other)
  Sender: FDA-Public Use
  Company Number: US-NAPPMUNDI-USA-2020-0150805

PATIENT
  Sex: Female

DRUGS (1)
  1. OXYCONTIN [Suspect]
     Active Substance: OXYCODONE HYDROCHLORIDE
     Indication: PAIN MANAGEMENT
     Dosage: UNK
     Route: 048
     Dates: start: 200707

REACTIONS (5)
  - Inadequate analgesia [Unknown]
  - Vomiting [Unknown]
  - Drug dependence [Recovered/Resolved]
  - Overdose [Unknown]
  - Emotional distress [Unknown]

NARRATIVE: CASE EVENT DATE: 200903
